FAERS Safety Report 7501844-X (Version None)
Quarter: 2011Q2

REPORT INFORMATION
  Report Type: 
  Country: None (occurrence: None)
  Receive Date: 20110525
  Receipt Date: 20110509
  Transmission Date: 20111010
  Serious: Yes (Hospitalization, Other)
  Sender: FDA-Public Use
  Company Number: US-BAYER-2010-003289

PATIENT
  Age: 33 Year
  Sex: Female
  Weight: 58.957 kg

DRUGS (2)
  1. ATENOLOL [Concomitant]
     Dosage: 12.5 MG, UNK
  2. YASMIN [Suspect]
     Indication: PRODUCT USED FOR UNKNOWN INDICATION
     Dosage: UNK
     Dates: start: 20040424, end: 20050421

REACTIONS (8)
  - TREMOR [None]
  - HEMIPARESIS [None]
  - MUSCLE SPASMS [None]
  - APHASIA [None]
  - MEMORY IMPAIRMENT [None]
  - CEREBROVASCULAR ACCIDENT [None]
  - GAIT DISTURBANCE [None]
  - PAIN [None]
